FAERS Safety Report 4306176-9 (Version None)
Quarter: 2004Q1

REPORT INFORMATION
  Report Type: 
  Country: None (occurrence: None)
  Receive Date: 20040225
  Receipt Date: 20040206
  Transmission Date: 20041129
  Serious: Yes (Other)
  Sender: FDA-Public Use
  Company Number: US_0402100563

PATIENT
  Age: 34 Year
  Sex: Male
  Weight: 73 kg

DRUGS (2)
  1. REGULAR INSULIN [Suspect]
     Indication: DIABETES MELLITUS
     Dosage: 15 U/DAY
  2. NPH ILETIN II (PORK) [Suspect]
     Indication: DIABETES MELLITUS
     Dosage: 40 U/DAY

REACTIONS (2)
  - EYE HAEMORRHAGE [None]
  - VISUAL ACUITY REDUCED [None]
